FAERS Safety Report 23132928 (Version 1)
Quarter: 2023Q4

REPORT INFORMATION
  Report Type: Spontaneous
  Country: US (occurrence: US)
  Receive Date: 20231101
  Receipt Date: 20231101
  Transmission Date: 20240110
  Serious: Yes (Hospitalization, Other)
  Sender: FDA-Public Use
  Company Number: US-drreddys-SPO/USA/23/0180552

PATIENT
  Age: 5 Year
  Sex: Male

DRUGS (11)
  1. FLUCONAZOLE [Suspect]
     Active Substance: FLUCONAZOLE
     Indication: Product used for unknown indication
     Route: 048
  2. AMPHOTERICIN B [Suspect]
     Active Substance: AMPHOTERICIN B
     Indication: Product used for unknown indication
     Dosage: TOPICAL INFUSIONS: AMPHOTERICIN B 0.1% FOR 15 MINUTES, FLUSH FOR 5 MINUTES. THIS WAS REPEATED HOURLY
     Route: 061
  3. AMPHOTERICIN B [Suspect]
     Active Substance: AMPHOTERICIN B
  4. VANCOMYCIN [Suspect]
     Active Substance: VANCOMYCIN
     Indication: Product used for unknown indication
     Dosage: 100 MG/L FOR 10 MINUTES, FLUSH FOR 2.5 MINUTES; THIS WAS REPEATED HOURLY AROUND THE CLOCK
     Route: 061
  5. VANCOMYCIN [Suspect]
     Active Substance: VANCOMYCIN
  6. VANCOMYCIN [Suspect]
     Active Substance: VANCOMYCIN
  7. MICONAZOLE [Suspect]
     Active Substance: MICONAZOLE
     Indication: Product used for unknown indication
     Route: 061
  8. MICONAZOLE [Suspect]
     Active Substance: MICONAZOLE
     Dosage: 1% FOR 10 MINUTES, FLUSH FOR 2.5 MINUTES; THIS WAS REPEATED HOURLY AROUND THE CLOCK
  9. CEFTAZIDIME [Suspect]
     Active Substance: CEFTAZIDIME
     Indication: Product used for unknown indication
  10. GENTAMICIN [Suspect]
     Active Substance: GENTAMICIN
     Indication: Product used for unknown indication
     Dosage: 100 MG/L FOR 10 MINUTES, FLUSH FOR 5 MINUTES; THIS WAS REPEATED HOURLY AROUND THE CLOCK
     Route: 061
  11. TOBRAMYCIN [Suspect]
     Active Substance: TOBRAMYCIN
     Indication: Product used for unknown indication
     Dosage: EACH 1 DROP EVERY 4 HOURS

REACTIONS (3)
  - Infective keratitis [Recovered/Resolved]
  - Infective corneal ulcer [Recovered/Resolved]
  - Candida infection [Recovered/Resolved]
